FAERS Safety Report 18990737 (Version 1)
Quarter: 2021Q1

REPORT INFORMATION
  Report Type: Report from Study
  Country: CA (occurrence: CA)
  Receive Date: 20210310
  Receipt Date: 20210310
  Transmission Date: 20210420
  Serious: Yes (Hospitalization)
  Sender: FDA-Public Use
  Company Number: CA-BAUSCH-BL-2021-007479

PATIENT
  Age: 63 Year
  Sex: Male

DRUGS (3)
  1. REVLIMID [Suspect]
     Active Substance: LENALIDOMIDE
     Indication: PLASMA CELL MYELOMA
     Route: 065
  2. DEXAMETHASONE. [Suspect]
     Active Substance: DEXAMETHASONE
     Indication: PLASMA CELL MYELOMA
     Route: 065
  3. IXAZOMIB [Suspect]
     Active Substance: IXAZOMIB
     Indication: PLASMA CELL MYELOMA
     Route: 048

REACTIONS (9)
  - Decubitus ulcer [Unknown]
  - Treatment noncompliance [Unknown]
  - Asthenia [Unknown]
  - Depressed level of consciousness [Unknown]
  - White blood cell count increased [Unknown]
  - Chills [Unknown]
  - Tremor [Unknown]
  - Product dose omission issue [Unknown]
  - Neutrophil count increased [Unknown]
